FAERS Safety Report 12929081 (Version 1)
Quarter: 2016Q4

REPORT INFORMATION
  Report Type: Report from Study
  Country: US (occurrence: US)
  Receive Date: 20161110
  Receipt Date: 20161110
  Transmission Date: 20170207
  Serious: Yes (Other)
  Sender: FDA-Public Use
  Company Number: US-009507513-1611USA000394

PATIENT
  Sex: Male

DRUGS (1)
  1. REMERON [Suspect]
     Active Substance: MIRTAZAPINE
     Indication: SLEEP DISORDER
     Dosage: UNK
     Route: 048
     Dates: start: 2016

REACTIONS (5)
  - Muscular dystrophy [Unknown]
  - Cleft palate [Unknown]
  - Depression [Unknown]
  - Product difficult to swallow [Unknown]
  - Product use issue [Unknown]

NARRATIVE: CASE EVENT DATE: 2016
